FAERS Safety Report 10071478 (Version 2)
Quarter: 2014Q2

REPORT INFORMATION
  Report Type: Report from Study
  Country: US (occurrence: US)
  Receive Date: 20140410
  Receipt Date: 20140416
  Transmission Date: 20141212
  Serious: Yes (Other)
  Sender: FDA-Public Use
  Company Number: US-BAXTER-2014BAX017274

PATIENT
  Age: 48 Year
  Sex: Female

DRUGS (2)
  1. GAMMAGARD LIQUID [Suspect]
     Indication: IMMUNODEFICIENCY COMMON VARIABLE
     Route: 058
     Dates: start: 2013, end: 201311
  2. GAMMAGARD LIQUID [Suspect]
     Route: 042
     Dates: start: 2013, end: 201311

REACTIONS (3)
  - Bronchitis [Recovering/Resolving]
  - Pleurisy [Recovering/Resolving]
  - Sinusitis [Recovering/Resolving]
